FAERS Safety Report 6091369-3 (Version None)
Quarter: 2009Q1

REPORT INFORMATION
  Report Type: 
  Country: None (occurrence: None)
  Receive Date: 20090225
  Receipt Date: 20090122
  Transmission Date: 20090719
  Serious: Yes (Other)
  Sender: FDA-Public Use
  Company Number: A0729434A

PATIENT
  Age: 58 Year
  Sex: Male

DRUGS (10)
  1. VERAMYST [Suspect]
     Dosage: 4SPR PER DAY
     Route: 045
     Dates: start: 20080301
  2. ZYRTEC [Concomitant]
  3. METFORMIN [Concomitant]
  4. GLYBURIDE [Concomitant]
  5. ACYCLOVIR [Concomitant]
  6. ASPIRIN [Concomitant]
  7. WARFARIN SODIUM [Concomitant]
  8. PANCREASE MT-10 [Concomitant]
  9. METOPROLOL [Concomitant]
  10. GABAPENTIN [Concomitant]

REACTIONS (2)
  - CATARACT [None]
  - EPISTAXIS [None]
